FAERS Safety Report 5660350-8 (Version None)
Quarter: 2008Q1

REPORT INFORMATION
  Report Type: 
  Country: None (occurrence: None)
  Receive Date: 20080311
  Receipt Date: 20071004
  Transmission Date: 20080703
  Serious: No
  Sender: FDA-Public Use
  Company Number: US-BAYER-200713250BCC

PATIENT
  Age: 73 Year
  Sex: Female
  Weight: 61 kg

DRUGS (8)
  1. ALEVE [Suspect]
     Indication: MIGRAINE
     Dosage: TOTAL DAILY DOSE: 880 MG  UNIT DOSE: 220 MG
     Route: 048
     Dates: start: 20071002
  2. ALEVE [Suspect]
     Dosage: UNIT DOSE: 220 MG
     Route: 048
     Dates: start: 20071003
  3. KLONOPIN [Concomitant]
  4. LIPITOR [Concomitant]
  5. OCUVITE-AREDS [Concomitant]
  6. CALCIUM [Concomitant]
  7. ANTIBIOTICS [Concomitant]
  8. BENADRYL [Concomitant]

REACTIONS (1)
  - RASH [None]
